FAERS Safety Report 7594911-6 (Version None)
Quarter: 2011Q3

REPORT INFORMATION
  Report Type: 
  Country: None (occurrence: None)
  Receive Date: 20110707
  Receipt Date: 20110628
  Transmission Date: 20111222
  Serious: Yes (Hospitalization)
  Sender: FDA-Public Use
  Company Number: GB-SANOFI-AVENTIS-2011SA041495

PATIENT
  Age: 70 Year
  Sex: Male
  Weight: 74 kg

DRUGS (7)
  1. ACETAMINOPHEN [Concomitant]
     Dates: start: 20100110
  2. DIHYDROCODEINE BITARTRATE INJ [Concomitant]
     Route: 065
     Dates: start: 20110202
  3. LORAZEPAM [Concomitant]
     Dates: start: 20101207
  4. LANSOPRAZOLE [Concomitant]
     Dates: start: 20100701
  5. ENOXAPARIN SODIUM [Concomitant]
     Route: 065
     Dates: start: 20091201
  6. DOCETAXEL [Suspect]
     Indication: NON-SMALL CELL LUNG CANCER
     Route: 042
     Dates: start: 20110202, end: 20110202
  7. DOCETAXEL [Suspect]
     Route: 042
     Dates: start: 20110411, end: 20110411

REACTIONS (2)
  - NEUTROPENIA [None]
  - HYPONATRAEMIA [None]
